FAERS Safety Report 9263589 (Version 1)
Quarter: 2013Q2

REPORT INFORMATION
  Report Type: Spontaneous
  Country: US (occurrence: US)
  Receive Date: 20130430
  Receipt Date: 20130430
  Transmission Date: 20140414
  Serious: Yes (Hospitalization)
  Sender: FDA-Public Use
  Company Number: US-BAYER-2013-053342

PATIENT
  Age: 45 Year
  Sex: Female
  Weight: 92.97 kg

DRUGS (18)
  1. YASMIN [Suspect]
  2. GIANVI [Suspect]
  3. OCELLA [Suspect]
  4. YAZ [Suspect]
     Indication: MENORRHAGIA
  5. YAZ [Suspect]
     Indication: DYSMENORRHOEA
  6. ZARAH [Suspect]
  7. MUPIROCIN [Concomitant]
     Dosage: 2.0 %, TWICE A DAY
     Route: 048
  8. CLINDAMYCIN [Concomitant]
     Dosage: 150 MG, 4 TIMES A DAY
     Route: 048
  9. KENALOG IN ORABASE [Concomitant]
     Dosage: TWICE A DAY
     Route: 061
  10. FLUOCINONIDE [FLUOCINONIDE] [Concomitant]
     Dosage: 0.05 %, DAILY
  11. ZOMIG [Concomitant]
     Dosage: 2.5 MG, PRN
  12. TOPAMAX [Concomitant]
     Indication: CONVULSION
     Dosage: 200 MG, BID
  13. PERCOCET [Concomitant]
     Dosage: UNK UNK, PRN
  14. METRONIDAZOLE [Concomitant]
     Dosage: 0.75 %, BEDTIME
     Route: 067
  15. ADIPEX [Concomitant]
     Dosage: 37.5 MG, BID
     Route: 048
  16. KETOCONAZOLE [Concomitant]
     Dosage: 2.0 %, BID
  17. WELLBUTRIN [Concomitant]
     Indication: DEPRESSION
  18. TRIAMCINOLONE IN ORABASE [Concomitant]

REACTIONS (1)
  - Pulmonary embolism [Recovered/Resolved]
